FAERS Safety Report 4819706-5 (Version None)
Quarter: 2005Q4

REPORT INFORMATION
  Report Type: 
  Country: None (occurrence: None)
  Receive Date: 20051102
  Receipt Date: 20051102
  Transmission Date: 20060501
  Serious: No
  Sender: FDA-Public Use
  Company Number: None

PATIENT
  Sex: Male
  Weight: 94.3482 kg

DRUGS (1)
  1. GABAPETIN [Suspect]
     Indication: MULTIPLE SCLEROSIS
     Dosage: 300MG 3 TABS QID

REACTIONS (2)
  - EMOTIONAL DISORDER [None]
  - PHARMACEUTICAL PRODUCT COMPLAINT [None]
